FAERS Safety Report 5962792-X (Version None)
Quarter: 2008Q4

REPORT INFORMATION
  Report Type: 
  Country: None (occurrence: None)
  Receive Date: 20081124
  Receipt Date: 20081113
  Transmission Date: 20090506
  Serious: Yes (Other)
  Sender: FDA-Public Use
  Company Number: CA-JNJFOC-20080803762

PATIENT
  Sex: Female

DRUGS (9)
  1. REMICADE [Suspect]
     Indication: RHEUMATOID ARTHRITIS
     Dosage: TREATMENT DATES WITH INFLIXIMAB REPORTED AS SINCE NOV 2005 - ON AND OFF
     Route: 042
  2. PREDNISONE TAB [Concomitant]
     Route: 048
  3. METHOTREXATE [Concomitant]
     Route: 058
  4. GLYBURIDE [Concomitant]
     Route: 048
  5. ALTACE [Concomitant]
     Route: 048
  6. METFORMIN HCL [Concomitant]
     Route: 048
  7. ARAVA [Concomitant]
     Route: 048
  8. CRESTOR [Concomitant]
     Route: 048
  9. COLCHICINE [Concomitant]
     Route: 048

REACTIONS (1)
  - MASS [None]
